FAERS Safety Report 8476598-3 (Version None)
Quarter: 2012Q2

REPORT INFORMATION
  Report Type: 
  Country: None (occurrence: None)
  Receive Date: 20120628
  Receipt Date: 20120622
  Transmission Date: 20120825
  Serious: Yes (Death, Hospitalization)
  Sender: FDA-Public Use
  Company Number: US-PFIZER INC-2012113230

PATIENT
  Sex: Male

DRUGS (1)
  1. XALKORI [Suspect]
     Indication: LUNG NEOPLASM MALIGNANT
     Dosage: 250 MG, 2X/DAY (1 CAPSULE)
     Route: 048
     Dates: start: 20120312

REACTIONS (10)
  - DISEASE PROGRESSION [None]
  - LUNG CANCER METASTATIC [None]
  - OESOPHAGEAL CANDIDIASIS [None]
  - ANAEMIA [None]
  - INAPPROPRIATE ANTIDIURETIC HORMONE SECRETION [None]
  - HYPONATRAEMIA [None]
  - ASTHENIA [None]
  - LUNG INFILTRATION [None]
  - ATRIAL FIBRILLATION [None]
  - LEUKOCYTOSIS [None]
